FAERS Safety Report 16340323 (Version 1)
Quarter: 2019Q2

REPORT INFORMATION
  Report Type: Spontaneous
  Country: ES (occurrence: ES)
  Receive Date: 20190522
  Receipt Date: 20190522
  Transmission Date: 20190711
  Serious: Yes (Hospitalization)
  Sender: FDA-Public Use
  Company Number: ES-SUN PHARMACEUTICAL INDUSTRIES LTD-2019RR-208513

PATIENT
  Age: 74 Year
  Sex: Male

DRUGS (6)
  1. BISOPROLOL (2328A) [Concomitant]
     Active Substance: BISOPROLOL
     Indication: HYPERTENSION
     Dosage: 2.5 MILLIGRAM, DAILY
     Route: 048
     Dates: start: 201107
  2. ENALAPRIL MALEATO (2142MA) [Concomitant]
     Active Substance: ENALAPRIL MALEATE
     Indication: HYPERTENSION
     Dosage: 20 MILLIGRAM, DAILY
     Route: 048
     Dates: start: 201301
  3. SPIOLTO RESPIMAT 2,5 MICROGRAMOS / 2,5 MICROGRAMOS SOLUCION PARA IN... [Concomitant]
     Indication: CHRONIC OBSTRUCTIVE PULMONARY DISEASE
     Dosage: 2.5 MICROGRAM, DAILY
     Route: 055
     Dates: start: 2018
  4. FOSFOMICINA TROMETAMOL (1599TJ) [Concomitant]
     Indication: PROSTATITIS
     Dosage: UNK
     Route: 065
     Dates: start: 20190115, end: 20190122
  5. ACETILSALICILICO ACIDO (176A) [Concomitant]
     Active Substance: ASPIRIN
     Indication: PROPHYLAXIS
     Dosage: 150 MILLIGRAM, DAILY
     Route: 048
     Dates: start: 201810
  6. CIPROFLOXACIN. [Suspect]
     Active Substance: CIPROFLOXACIN
     Indication: PROSTATITIS
     Dosage: 2.25 GRAM, DAILY
     Route: 048
     Dates: start: 20181211, end: 20190102

REACTIONS (1)
  - Hypersensitivity vasculitis [Recovered/Resolved]

NARRATIVE: CASE EVENT DATE: 20190119
